FAERS Safety Report 12906308 (Version 1)
Quarter: 2016Q4

REPORT INFORMATION
  Report Type: Spontaneous
  Country: CA (occurrence: CA)
  Receive Date: 20161103
  Receipt Date: 20161103
  Transmission Date: 20170207
  Serious: Yes (Life-Threatening, Disabling)
  Sender: FDA-Public Use
  Company Number: PHHY2016CA151016

PATIENT
  Age: 38 Year
  Sex: Female
  Weight: 63.49 kg

DRUGS (1)
  1. RITALIN [Suspect]
     Active Substance: METHYLPHENIDATE HYDROCHLORIDE
     Indication: PRODUCT USED FOR UNKNOWN INDICATION
     Route: 065

REACTIONS (1)
  - Anxiety [Recovered/Resolved]
